FAERS Safety Report 6784951-9 (Version None)
Quarter: 2010Q2

REPORT INFORMATION
  Report Type: 
  Country: None (occurrence: None)
  Receive Date: 20100622
  Receipt Date: 20100615
  Transmission Date: 20101027
  Serious: Yes (Other)
  Sender: FDA-Public Use
  Company Number: NZ-WYE-G06282410

PATIENT

DRUGS (1)
  1. EFFEXOR XR [Suspect]
     Dosage: 300MG

REACTIONS (1)
  - HEPATOTOXICITY [None]
